FAERS Safety Report 15792940 (Version 1)
Quarter: 2019Q1

REPORT INFORMATION
  Report Type: Report from Study
  Country: US (occurrence: US)
  Receive Date: 20190107
  Receipt Date: 20190107
  Transmission Date: 20190417
  Serious: Yes (Hospitalization, Other)
  Sender: FDA-Public Use
  Company Number: US-ELI_LILLY_AND_COMPANY-US201712001653

PATIENT
  Age: 66 Year
  Sex: Female
  Weight: 31 kg

DRUGS (2)
  1. VITAMIN D3 [Concomitant]
     Active Substance: CHOLECALCIFEROL
     Indication: PRODUCT USED FOR UNKNOWN INDICATION
  2. TERIPARATIDE [Suspect]
     Active Substance: TERIPARATIDE
     Indication: OSTEOPOROSIS
     Dosage: 20 UG, DAILY
     Route: 058
     Dates: start: 201612, end: 201712

REACTIONS (11)
  - Cerebrovascular accident [Recovered/Resolved]
  - Irritable bowel syndrome [Not Recovered/Not Resolved]
  - Seizure [Recovered/Resolved]
  - Upper limb fracture [Recovered/Resolved]
  - Gastrointestinal disorder [Not Recovered/Not Resolved]
  - Cerebral disorder [Not Recovered/Not Resolved]
  - Bone density decreased [Not Recovered/Not Resolved]
  - Pancreatic mass [Unknown]
  - Dehydration [Not Recovered/Not Resolved]
  - Nephrolithiasis [Recovered/Resolved]
  - Nephrolithiasis [Recovered/Resolved]

NARRATIVE: CASE EVENT DATE: 201702
